FAERS Safety Report 18702884 (Version 1)
Quarter: 2021Q1

REPORT INFORMATION
  Report Type: Spontaneous
  Country: US (occurrence: US)
  Receive Date: 20210105
  Receipt Date: 20210105
  Transmission Date: 20210419
  Serious: No
  Sender: FDA-Public Use
  Company Number: US-INCYTE CORPORATION-2021IN000004

PATIENT

DRUGS (2)
  1. JAKAFI [Suspect]
     Active Substance: RUXOLITINIB
     Indication: BONE MARROW TRANSPLANT
     Dosage: 15 MILLIGRAM, BID
     Route: 048
     Dates: start: 20201002
  2. HYDROCODONE POLISTIREX AND CHLORPHENIRAMINE POLISTIREX [Concomitant]
     Active Substance: CHLORPHENIRAMINE MALEATE\HYDROCODONE BITARTRATE
     Indication: PRODUCT USED FOR UNKNOWN INDICATION
     Dosage: UNK
     Route: 065

REACTIONS (3)
  - Product availability issue [Unknown]
  - Off label use [Unknown]
  - Malaise [Not Recovered/Not Resolved]

NARRATIVE: CASE EVENT DATE: 20201002
